FAERS Safety Report 4606013-9 (Version None)
Quarter: 2005Q1

REPORT INFORMATION
  Report Type: 
  Country: None (occurrence: None)
  Receive Date: 20050116
  Receipt Date: 20041209
  Transmission Date: 20050727
  Serious: Yes (Hospitalization, Other)
  Sender: FDA-Public Use
  Company Number: HQWYE8871610DEC04

PATIENT
  Age: 48 Year
  Sex: Female
  Weight: 34.05 kg

DRUGS (5)
  1. EFFEXOR [Suspect]
     Indication: ANOREXIA
     Dosage: SEE IMAGE
     Route: 048
     Dates: end: 19970101
  2. EFFEXOR [Suspect]
     Indication: BULIMIA NERVOSA
     Dosage: SEE IMAGE
     Route: 048
     Dates: end: 19970101
  3. EFFEXOR [Suspect]
     Indication: ANOREXIA
     Dosage: SEE IMAGE
     Route: 048
     Dates: start: 19940101
  4. EFFEXOR [Suspect]
     Indication: BULIMIA NERVOSA
     Dosage: SEE IMAGE
     Route: 048
     Dates: start: 19940101
  5. TUMS (CALCIUM CARBONATE/MAGNESIUM CARBONATE/MAGNESIUM TRISILICATE) [Concomitant]

REACTIONS (1)
  - PANIC ATTACK [None]
